FAERS Safety Report 23241729 (Version 2)
Quarter: 2023Q4

REPORT INFORMATION
  Report Type: Report from Study
  Country: IT (occurrence: IT)
  Receive Date: 20231129
  Receipt Date: 20231204
  Transmission Date: 20240109
  Serious: Yes (Hospitalization)
  Sender: FDA-Public Use
  Company Number: None

PATIENT
  Age: 82 Year
  Sex: Female

DRUGS (1)
  1. PRADAXA [Suspect]
     Active Substance: DABIGATRAN ETEXILATE MESYLATE
     Indication: Product used for unknown indication
     Dosage: INTAKE AT THERAPEUTIC DOSE
     Route: 048

REACTIONS (6)
  - Rectal haemorrhage [Recovered/Resolved]
  - Gingival bleeding [Recovered/Resolved]
  - International normalised ratio increased [Recovered/Resolved]
  - Blood creatinine increased [Unknown]
  - Abdominal pain [Recovered/Resolved]
  - Dysentery [Recovered/Resolved]

NARRATIVE: CASE EVENT DATE: 20230905
